FAERS Safety Report 19277767 (Version 2)
Quarter: 2021Q3

REPORT INFORMATION
  Report Type: Report from Study
  Country: US (occurrence: US)
  Receive Date: 20210520
  Receipt Date: 20210804
  Transmission Date: 20211014
  Serious: Yes (Hospitalization, Other)
  Sender: FDA-Public Use
  Company Number: US-GILEAD-2021-0529968

PATIENT
  Age: 37 Year
  Sex: Female
  Weight: 93.2 kg

DRUGS (19)
  1. HYDRALAZINE [Concomitant]
     Active Substance: HYDRALAZINE HYDROCHLORIDE
  2. BACLOFEN. [Concomitant]
     Active Substance: BACLOFEN
  3. LORAZEPAM. [Concomitant]
     Active Substance: LORAZEPAM
  4. BISACODYL. [Concomitant]
     Active Substance: BISACODYL
  5. DEXTROSE. [Concomitant]
     Active Substance: DEXTROSE
  6. HYDROMORPHONE [Concomitant]
     Active Substance: HYDROMORPHONE
  7. SOFOSBUVIR W/VELPATASVIR [Suspect]
     Active Substance: SOFOSBUVIR\VELPATASVIR
     Indication: HEPATITIS C
     Dosage: UNK, QD, OROGASTRIC TUBE
     Route: 065
     Dates: start: 20210401
  8. HYDROCODONE/ACETAMINOPHEN [Concomitant]
     Active Substance: ACETAMINOPHEN\HYDROCODONE
  9. APIXABAN [Concomitant]
     Active Substance: APIXABAN
  10. LEVETIRACETAM. [Concomitant]
     Active Substance: LEVETIRACETAM
  11. ACETAMINOPHEN. [Concomitant]
     Active Substance: ACETAMINOPHEN
  12. ARTIFICIAL TEARS [HYPROMELLOSE] [Concomitant]
  13. SODIUM FERRIC GLUCONATE COMPLEX. [Concomitant]
     Active Substance: SODIUM FERRIC GLUCONATE COMPLEX
  14. ALBUTEROL [SALBUTAMOL] [Concomitant]
     Active Substance: ALBUTEROL
  15. ALTEPLASE. [Concomitant]
     Active Substance: ALTEPLASE
  16. DEXMEDETOMIDINE. [Concomitant]
     Active Substance: DEXMEDETOMIDINE
  17. PROPOFOL. [Concomitant]
     Active Substance: PROPOFOL
  18. SODIUM CHLORIDE. [Concomitant]
     Active Substance: SODIUM CHLORIDE
  19. ZONISAMIDE. [Concomitant]
     Active Substance: ZONISAMIDE

REACTIONS (8)
  - Respiratory failure [Unknown]
  - Quadriplegia [Not Recovered/Not Resolved]
  - Mental status changes [Unknown]
  - Endotracheal intubation [Not Recovered/Not Resolved]
  - Spinal fracture [Unknown]
  - Metabolic encephalopathy [Unknown]
  - Staring [Unknown]
  - Wrong technique in product usage process [Not Recovered/Not Resolved]
